FAERS Safety Report 7536719 (Version 4)
Quarter: 2013Q1

REPORT INFORMATION
  Report Type: Spontaneous
  Country: US (occurrence: US)
  Receive Date: 20100811
  Receipt Date: 20130327
  Transmission Date: 20140127
  Serious: Yes (Hospitalization, Other)
  Sender: FDA-Public Use
  Company Number: US-BAYER-201030150NA

PATIENT
  Age: 43 Year
  Sex: Female
  Weight: 133 kg

DRUGS (11)
  1. YASMIN [Suspect]
     Indication: PRODUCT USED FOR UNKNOWN INDICATION
     Dosage: UNK
     Route: 048
     Dates: start: 200604, end: 200704
  2. FEXOFENADINE [Concomitant]
  3. SYNTHROID [Concomitant]
     Dosage: 175 MCG/24HR, UNK
  4. BUDEPRION [Concomitant]
     Dosage: 300 MG, UNK
  5. VITAMIN E [Concomitant]
     Dosage: 800 IU, QD
  6. MULTIVITAMIN [Concomitant]
  7. CALCIUM +VIT D [Concomitant]
     Dosage: UNK MG, UNK
  8. ASPIRIN [Concomitant]
  9. ALLEGRA [Concomitant]
     Dosage: UNK UNK, PRN
  10. FISH OIL [Concomitant]
  11. GLUCOSAMINE W/CHONDROITIN SULFATE [Concomitant]

REACTIONS (9)
  - Pulmonary embolism [Unknown]
  - Dyspnoea [Unknown]
  - Chest discomfort [Unknown]
  - Throat tightness [Unknown]
  - Dizziness [Unknown]
  - Hyperhidrosis [Unknown]
  - Pallor [Unknown]
  - Deep vein thrombosis [None]
  - Depression [None]
